FAERS Safety Report 15820705 (Version 1)
Quarter: 2019Q1

REPORT INFORMATION
  Report Type: Spontaneous
  Country: US (occurrence: US)
  Receive Date: 20190111
  Receipt Date: 20190111
  Transmission Date: 20190417
  Serious: Yes (Hospitalization)
  Sender: FDA-Public Use
  Company Number: None

PATIENT
  Age: 12 Month
  Sex: Male

DRUGS (2)
  1. SYNAGIS [Suspect]
     Active Substance: PALIVIZUMAB
     Dosage: ?          OTHER FREQUENCY:ONCE PER MONTH;?
     Route: 030
  2. REVATIO 10MG/ML [Concomitant]

REACTIONS (2)
  - Dehydration [None]
  - Pancreatic failure [None]

NARRATIVE: CASE EVENT DATE: 20181231
